FAERS Safety Report 4962886-1 (Version None)
Quarter: 2006Q2

REPORT INFORMATION
  Report Type: 
  Country: None (occurrence: None)
  Receive Date: 20060405
  Receipt Date: 20060328
  Transmission Date: 20061013
  Serious: Yes (Hospitalization, Other)
  Sender: FDA-Public Use
  Company Number: PHFR2006GB01280

PATIENT
  Age: 24 Year
  Sex: Male

DRUGS (2)
  1. CLOZARIL [Suspect]
     Indication: SCHIZOPHRENIA
     Dosage: 500 MG/DAY
     Route: 048
     Dates: start: 20010509
  2. CLOZARIL [Suspect]
     Dosage: 600 MG
     Route: 048

REACTIONS (3)
  - CIRCULATORY COLLAPSE [None]
  - MEDICATION ERROR [None]
  - SOMNOLENCE [None]
